FAERS Safety Report 15783639 (Version 5)
Quarter: 2019Q1

REPORT INFORMATION
  Report Type: Report from Study
  Country: US (occurrence: US)
  Receive Date: 20190102
  Receipt Date: 20190131
  Transmission Date: 20190417
  Serious: Yes (Hospitalization, Other)
  Sender: FDA-Public Use
  Company Number: US-GILEAD-2018-0382192

PATIENT
  Age: 52 Year
  Sex: Female

DRUGS (6)
  1. ADCIRCA [Concomitant]
     Active Substance: TADALAFIL
  2. TADALAFIL. [Concomitant]
     Active Substance: TADALAFIL
  3. AMBRISENTAN [Suspect]
     Active Substance: AMBRISENTAN
     Indication: PULMONARY ARTERIAL HYPERTENSION
     Dosage: 10 MG, QD
     Route: 048
     Dates: start: 20160706
  4. UPTRAVI [Concomitant]
     Active Substance: SELEXIPAG
  5. REMODULIN [Concomitant]
     Active Substance: TREPROSTINIL
  6. OXYGEN. [Concomitant]
     Active Substance: OXYGEN

REACTIONS (11)
  - Gastric ulcer [Not Recovered/Not Resolved]
  - Asthenia [Unknown]
  - Dyspnoea [Unknown]
  - Chest pain [Recovered/Resolved]
  - Fatigue [Unknown]
  - Product dose omission [Unknown]
  - Ill-defined disorder [Unknown]
  - Exercise tolerance decreased [Unknown]
  - Abdominal pain upper [Unknown]
  - Intentional dose omission [Recovered/Resolved]
  - Bundle branch block right [Not Recovered/Not Resolved]

NARRATIVE: CASE EVENT DATE: 201810
